FAERS Safety Report 21121497 (Version 1)
Quarter: 2022Q3

REPORT INFORMATION
  Report Type: Spontaneous
  Country: JP (occurrence: JP)
  Receive Date: 20220722
  Receipt Date: 20220722
  Transmission Date: 20221027
  Serious: Yes (Other)
  Sender: FDA-Public Use
  Company Number: JP-ELI_LILLY_AND_COMPANY-JP202207005776AA

PATIENT
  Age: 65 Year

DRUGS (2)
  1. CYRAMZA [Suspect]
     Active Substance: RAMUCIRUMAB
     Indication: Gastric cancer
     Dosage: 8 MG/KG, OTHER
     Route: 041
  2. PACLITAXEL [Concomitant]
     Active Substance: PACLITAXEL
     Indication: Gastric cancer

REACTIONS (2)
  - Thrombosis [Recovered/Resolved]
  - Nephrotic syndrome [Recovered/Resolved]
